FAERS Safety Report 24411811 (Version 1)
Quarter: 2024Q4

REPORT INFORMATION
  Report Type: Spontaneous
  Country: US (occurrence: US)
  Receive Date: 20241008
  Receipt Date: 20241008
  Transmission Date: 20250114
  Serious: Yes (Death, Hospitalization, Other)
  Sender: AMGEN
  Company Number: US-AMGEN-USASP2024197039

PATIENT
  Age: 73 Year
  Sex: Male

DRUGS (9)
  1. PREDNISONE [Suspect]
     Active Substance: PREDNISONE
     Indication: Colitis ulcerative
     Dosage: 20 MILLIGRAM, QD
     Route: 065
     Dates: end: 202309
  2. PREDNISONE [Suspect]
     Active Substance: PREDNISONE
     Dosage: UNK  (CYCLE 1)
     Route: 065
     Dates: start: 202310
  3. INFLIXIMAB [Suspect]
     Active Substance: INFLIXIMAB
     Indication: Colitis ulcerative
     Dosage: UNK
     Route: 065
  4. ADALIMUMAB [Concomitant]
     Active Substance: ADALIMUMAB
     Indication: Colitis ulcerative
     Dosage: UNK
     Route: 065
  5. ETOPOSIDE [Concomitant]
     Active Substance: ETOPOSIDE
     Indication: Colitis ulcerative
     Dosage: UNK (CYCLE 1)
  6. VINCRISTINE [Concomitant]
     Active Substance: VINCRISTINE
     Indication: Colitis ulcerative
     Dosage: UNK (CYCLE 1)
  7. CYCLOPHOSPHAMIDE [Concomitant]
     Active Substance: CYCLOPHOSPHAMIDE
     Indication: Colitis ulcerative
     Dosage: UNK (CYCLE 1)
  8. VEDOLIZUMAB [Concomitant]
     Active Substance: VEDOLIZUMAB
     Indication: Colitis ulcerative
     Dosage: UNK
  9. DOXORUBICIN [Concomitant]
     Active Substance: DOXORUBICIN
     Indication: Colitis ulcerative
     Dosage: UNK (CYCLE 1)

REACTIONS (8)
  - Death [Fatal]
  - Pneumonia [Unknown]
  - Atrial fibrillation [Unknown]
  - Aspiration [Unknown]
  - Colitis [Unknown]
  - Intestinal perforation [Unknown]
  - Plasmablastic lymphoma [Unknown]
  - Treatment failure [Unknown]

NARRATIVE: CASE EVENT DATE: 20230901
